FAERS Safety Report 8957138 (Version 1)
Quarter: 2012Q4

REPORT INFORMATION
  Report Type: 
  Country: US (occurrence: US)
  Receive Date: 20121210
  Receipt Date: 20121210
  Transmission Date: 20130627
  Serious: No
  Sender: FDA-Public Use
  Company Number: US-ASTELLAS-2012US011941

PATIENT
  Sex: Male

DRUGS (1)
  1. XTANDI [Suspect]
     Indication: PRODUCT USED FOR UNKNOWN INDICATION
     Dosage: 160 mg, UID/QD
     Route: 048
     Dates: start: 201209

REACTIONS (5)
  - Hot flush [Unknown]
  - Anxiety [Unknown]
  - Fatigue [Unknown]
  - Muscular weakness [Unknown]
  - Diarrhoea [Unknown]
